FAERS Safety Report 11786404 (Version 1)
Quarter: 2015Q4

REPORT INFORMATION
  Report Type: Spontaneous
  Country: PA (occurrence: PA)
  Receive Date: 20151130
  Receipt Date: 20151130
  Transmission Date: 20160305
  Serious: Yes (Other)
  Sender: FDA-Public Use
  Company Number: PA-GILEAD-2015-0184557

PATIENT
  Age: 64 Year
  Sex: Male

DRUGS (8)
  1. METFORMIN [Concomitant]
     Active Substance: METFORMIN HYDROCHLORIDE
     Dosage: 850 MG, BID
  2. IRBESARTAN. [Concomitant]
     Active Substance: IRBESARTAN
     Dosage: 300 MG, QD
  3. ASPIRINA [Concomitant]
     Active Substance: ASPIRIN
     Dosage: 100 MG, QD
  4. ADACAI                             /01587001/ [Concomitant]
  5. CONTROLIP                          /00499301/ [Concomitant]
     Dosage: 160 MG, QD
  6. ESPIRONOLACTON [Concomitant]
     Dosage: 25 MG, QD
  7. PLAVIX [Concomitant]
     Active Substance: CLOPIDOGREL BISULFATE
     Dosage: 74 MG, QD
  8. RANOLAZINE [Suspect]
     Active Substance: RANOLAZINE
     Indication: ANGINA PECTORIS
     Dosage: 500 MG, BID
     Route: 048
     Dates: start: 20150701, end: 20150913

REACTIONS (1)
  - Anuria [Recovered/Resolved]

NARRATIVE: CASE EVENT DATE: 20150911
